FAERS Safety Report 14115563 (Version 1)
Quarter: 2017Q4

REPORT INFORMATION
  Report Type: Spontaneous
  Country: US (occurrence: US)
  Receive Date: 20171023
  Receipt Date: 20171023
  Transmission Date: 20180321
  Serious: No
  Sender: FDA-Public Use
  Company Number: US-ALLERGAN-1729136US

PATIENT
  Sex: Female
  Weight: 79.37 kg

DRUGS (7)
  1. MORPHINE [Concomitant]
     Active Substance: MORPHINE
     Indication: PAIN
     Dosage: UNK
     Route: 037
  2. SEROQUEL [Concomitant]
     Active Substance: QUETIAPINE FUMARATE
     Indication: SLEEP DISORDER
     Dosage: UNK
     Route: 048
  3. LINZESS [Suspect]
     Active Substance: LINACLOTIDE
     Indication: IRRITABLE BOWEL SYNDROME
     Dosage: 290 ?G, QD
     Route: 048
  4. SENNA [Concomitant]
     Active Substance: SENNA LEAF\SENNOSIDES\SENNOSIDES A AND B
     Indication: CONSTIPATION
     Dosage: 15.6 MG, BID
     Route: 048
  5. LINZESS [Suspect]
     Active Substance: LINACLOTIDE
     Dosage: 145 ?G, UNK
     Route: 048
  6. COLACE [Concomitant]
     Active Substance: DOCUSATE SODIUM
     Indication: CONSTIPATION
     Dosage: 250 MG, BID
     Route: 048
  7. APLENZIN [Concomitant]
     Active Substance: BUPROPION HYDROBROMIDE
     Indication: DEPRESSION
     Dosage: UNK

REACTIONS (9)
  - Abdominal distension [Recovered/Resolved]
  - Oropharyngeal pain [Recovered/Resolved]
  - Asthenia [Recovered/Resolved]
  - Headache [Recovered/Resolved]
  - Infrequent bowel movements [Recovered/Resolved]
  - Pharyngeal oedema [Recovered/Resolved]
  - Diarrhoea [Recovered/Resolved]
  - Off label use [Unknown]
  - Abdominal pain [Recovered/Resolved]
